FAERS Safety Report 15751787 (Version 1)
Quarter: 2018Q4

REPORT INFORMATION
  Report Type: Spontaneous
  Country: CH (occurrence: CH)
  Receive Date: 20181221
  Receipt Date: 20181221
  Transmission Date: 20190205
  Serious: Yes (Hospitalization, Other)
  Sender: FDA-Public Use
  Company Number: CH-COLLEGIUM PHARMACEUTICAL, INC.-CH-2018COL014602

PATIENT
  Sex: Male
  Weight: 58 kg

DRUGS (1)
  1. TAPENTADOL EXTENDED RELEASE [Suspect]
     Active Substance: TAPENTADOL
     Indication: BACK PAIN
     Dosage: 50 MG, SINGLE
     Dates: start: 20181108, end: 20181108

REACTIONS (2)
  - Renal impairment [Unknown]
  - Cardiac failure [Recovered/Resolved]
